FAERS Safety Report 8251743-3 (Version None)
Quarter: 2012Q2

REPORT INFORMATION
  Report Type: 
  Country: None (occurrence: None)
  Receive Date: 20120402
  Receipt Date: 20120326
  Transmission Date: 20120825
  Serious: Yes (Death, Hospitalization, Other)
  Sender: FDA-Public Use
  Company Number: IT-ABBOTT-11P-083-0850906-00

PATIENT
  Sex: Female

DRUGS (4)
  1. HUMIRA [Suspect]
     Indication: PSORIATIC ARTHROPATHY
     Route: 058
     Dates: start: 20100922, end: 20110316
  2. ENBREL [Suspect]
     Indication: PSORIATIC ARTHROPATHY
     Dosage: WEEKLY
     Route: 058
     Dates: start: 20061113, end: 20070523
  3. METHOTREXATE [Suspect]
     Indication: PSORIATIC ARTHROPATHY
     Route: 030
     Dates: start: 20040701, end: 20110316
  4. REMICADE [Suspect]
     Indication: PSORIATIC ARTHROPATHY
     Route: 042
     Dates: start: 20070606, end: 20100805

REACTIONS (2)
  - METASTASES TO PERITONEUM [None]
  - GASTROINTESTINAL CARCINOMA [None]
